FAERS Safety Report 23205618 (Version 1)
Quarter: 2023Q4

REPORT INFORMATION
  Report Type: Spontaneous
  Country: US (occurrence: US)
  Receive Date: 20231120
  Receipt Date: 20231120
  Transmission Date: 20240110
  Serious: No
  Sender: FDA-Public Use
  Company Number: US-BIOGEN-2017BI00364437

PATIENT
  Sex: Female

DRUGS (1)
  1. TYSABRI [Suspect]
     Active Substance: NATALIZUMAB
     Indication: Multiple sclerosis
     Route: 050
     Dates: start: 20170213, end: 20170405

REACTIONS (5)
  - Memory impairment [Unknown]
  - pH body fluid abnormal [Unknown]
  - Bacterial vaginosis [Unknown]
  - Dental caries [Unknown]
  - Cognitive disorder [Unknown]
